FAERS Safety Report 26067994 (Version 3)
Quarter: 2025Q4

REPORT INFORMATION
  Report Type: Spontaneous
  Country: US (occurrence: US)
  Receive Date: 20251120
  Receipt Date: 20251230
  Transmission Date: 20260118
  Serious: Yes (Other)
  Sender: CSL BEHRING
  Company Number: US-BEH-2025222388

PATIENT
  Age: 66 Year
  Sex: Male

DRUGS (4)
  1. ANDEMBRY [Suspect]
     Active Substance: GARADACIMAB-GXII
     Indication: Hereditary angioedema with normal C1 esterase inhibitor
     Dosage: 200 MG, QMT
     Route: 058
  2. ANDEMBRY [Suspect]
     Active Substance: GARADACIMAB-GXII
     Indication: Prophylaxis
     Dosage: UNK
     Route: 065
     Dates: start: 20250910
  3. ANDEMBRY [Suspect]
     Active Substance: GARADACIMAB-GXII
     Dosage: 200 MG, QMT
     Route: 058
     Dates: start: 202511
  4. ANDEMBRY [Suspect]
     Active Substance: GARADACIMAB-GXII
     Dosage: UNK
     Route: 065
     Dates: start: 20251120

REACTIONS (5)
  - Hereditary angioedema [Not Recovered/Not Resolved]
  - Hereditary angioedema [Not Recovered/Not Resolved]
  - Hereditary angioedema [Unknown]
  - Device malfunction [Unknown]
  - Inappropriate schedule of product administration [Unknown]

NARRATIVE: CASE EVENT DATE: 20251001
